FAERS Safety Report 15246962 (Version 1)
Quarter: 2018Q3

REPORT INFORMATION
  Report Type: Spontaneous
  Country: US (occurrence: US)
  Receive Date: 20180806
  Receipt Date: 20180806
  Transmission Date: 20181010
  Serious: Yes (Other)
  Sender: FDA-Public Use
  Company Number: US-BAXTER-2018BAX020694

PATIENT
  Age: 9 Year
  Sex: Male

DRUGS (6)
  1. VINCRISTINE [Suspect]
     Active Substance: VINCRISTINE
     Indication: RHABDOID TUMOUR
     Route: 065
  2. IFEX [Suspect]
     Active Substance: IFOSFAMIDE
     Indication: RHABDOID TUMOUR
     Route: 065
  3. ETOPOSIDE. [Suspect]
     Active Substance: ETOPOSIDE
     Indication: RHABDOID TUMOUR
     Route: 065
  4. CYCLOPHOSPHAMIDE FOR INJECTION, USP [Suspect]
     Active Substance: CYCLOPHOSPHAMIDE
     Indication: RHABDOID TUMOUR
     Route: 065
  5. CARBOPLATIN. [Suspect]
     Active Substance: CARBOPLATIN
     Indication: RHABDOID TUMOUR
     Route: 065
  6. DOXORUBICIN [Suspect]
     Active Substance: DOXORUBICIN
     Indication: RHABDOID TUMOUR
     Route: 065

REACTIONS (6)
  - Cystitis haemorrhagic [Unknown]
  - Vomiting [Unknown]
  - Pancytopenia [Unknown]
  - Nausea [Unknown]
  - Neurotoxicity [Unknown]
  - Fanconi syndrome [Unknown]
